FAERS Safety Report 6555822-8 (Version None)
Quarter: 2010Q1

REPORT INFORMATION
  Report Type: 
  Country: None (occurrence: None)
  Receive Date: 20100128
  Receipt Date: 20100125
  Transmission Date: 20100710
  Serious: Yes (Hospitalization, Other)
  Sender: FDA-Public Use
  Company Number: US-BAYER-201012530NA

PATIENT
  Sex: Female

DRUGS (2)
  1. YAZ [Suspect]
     Indication: DRUG USE FOR UNKNOWN INDICATION
     Dates: start: 20070701, end: 20091001
  2. YASMIN [Suspect]
     Indication: DRUG USE FOR UNKNOWN INDICATION
     Dates: start: 20070701, end: 20091001

REACTIONS (7)
  - ASTHENIA [None]
  - CONVULSION [None]
  - FATIGUE [None]
  - GRAND MAL CONVULSION [None]
  - NERVOUS SYSTEM DISORDER [None]
  - PAIN [None]
  - PETIT MAL EPILEPSY [None]
